FAERS Safety Report 8114608-3 (Version None)
Quarter: 2012Q1

REPORT INFORMATION
  Report Type: 
  Country: None (occurrence: None)
  Receive Date: 20120206
  Receipt Date: 20120204
  Transmission Date: 20120608
  Serious: Yes (Other)
  Sender: FDA-Public Use
  Company Number: US-PFIZER INC-2012030930

PATIENT
  Sex: Male
  Weight: 104 kg

DRUGS (6)
  1. CELEBREX [Suspect]
     Indication: PAIN IN EXTREMITY
     Dosage: UNK, DAILY
     Route: 048
     Dates: start: 20120120, end: 20120130
  2. CELEBREX [Suspect]
     Indication: OEDEMA PERIPHERAL
  3. LOTENSIN [Concomitant]
     Indication: HYPERTENSION
     Dosage: 50 MG, DAILY
     Route: 048
  4. TOPROL-XL [Concomitant]
     Indication: HYPERTENSION
     Dosage: 250 MG, 3X/DAY
     Route: 048
  5. NEXIUM [Concomitant]
     Dosage: UNK
  6. METFORMIN [Concomitant]
     Indication: DIABETES MELLITUS
     Dosage: 500 MG, 3X/DAY
     Route: 048

REACTIONS (6)
  - DYSPEPSIA [None]
  - ABDOMINAL PAIN [None]
  - DIARRHOEA [None]
  - VOMITING [None]
  - FAECES DISCOLOURED [None]
  - RENAL IMPAIRMENT [None]
